FAERS Safety Report 14666392 (Version 1)
Quarter: 2018Q1

REPORT INFORMATION
  Report Type: Spontaneous
  Country: US (occurrence: US)
  Receive Date: 20180320
  Receipt Date: 20180320
  Transmission Date: 20180509
  Serious: No
  Sender: FDA-Public Use
  Company Number: None

PATIENT
  Age: 70 Year
  Sex: Female

DRUGS (1)
  1. NINLARO [Suspect]
     Active Substance: IXAZOMIB CITRATE
     Indication: PLASMA CELL MYELOMA
     Dosage: NINLARO 4MG 1 CAP ON DAYS 1, 8 AND 15 EACH MONTH ORAL
     Route: 048

REACTIONS (2)
  - Nausea [None]
  - Platelet count decreased [None]
